FAERS Safety Report 23181048 (Version 1)
Quarter: 2023Q4

REPORT INFORMATION
  Report Type: Report from Study
  Country: US (occurrence: US)
  Receive Date: 20231114
  Receipt Date: 20231114
  Transmission Date: 20240110
  Serious: Yes (Hospitalization, Other)
  Sender: FDA-Public Use
  Company Number: US-ABBVIE-5490094

PATIENT
  Sex: Female

DRUGS (3)
  1. LUMIGAN [Suspect]
     Active Substance: BIMATOPROST
     Indication: Product used for unknown indication
     Dosage: 1MG/ML SOL; FORM STRENGTH: 1 MILLIGRAM; FREQUENCY: 1 DROP EACH EYE TWICE A DAY
     Route: 047
     Dates: start: 201912
  2. ALPHAGAN P [Suspect]
     Active Substance: BRIMONIDINE TARTRATE
     Indication: Product used for unknown indication
     Dosage: 0.1MG/ML SOL; FORM STRENGTH: 0.1 MILLIGRAM; FREQUENCY: 1 DROP ON EACH EYE ON BEDTIME
     Route: 047
     Dates: start: 201912
  3. RESTASIS [Suspect]
     Active Substance: CYCLOSPORINE
     Indication: Product used for unknown indication
     Dosage: 0.5MG/ML EML; FORM STRENGTH: 0.5 MILLIGRAM; FREQUENCY: 1 DROP EACH EYE TWICE A DAY
     Route: 047
     Dates: start: 201912

REACTIONS (3)
  - Joint injury [Unknown]
  - Hypotension [Unknown]
  - Dizziness [Unknown]

NARRATIVE: CASE EVENT DATE: 20220101
